FAERS Safety Report 17389928 (Version 1)
Quarter: 2020Q1

REPORT INFORMATION
  Report Type: Report from Study
  Country: None (occurrence: US)
  Receive Date: 20200207
  Receipt Date: 20200207
  Transmission Date: 20200409
  Serious: Yes (Other)
  Sender: FDA-Public Use
  Company Number: US-ABBVIE-20K-163-3265514-00

PATIENT
  Sex: Male

DRUGS (1)
  1. VENCLEXTA [Suspect]
     Active Substance: VENETOCLAX
     Indication: ACUTE MYELOID LEUKAEMIA (IN REMISSION)
     Route: 048
     Dates: start: 20200118

REACTIONS (3)
  - Transfusion [Unknown]
  - Depression [Unknown]
  - Hypersomnia [Unknown]

NARRATIVE: CASE EVENT DATE: 2020
